FAERS Safety Report 4369275-1 (Version None)
Quarter: 2004Q2

REPORT INFORMATION
  Report Type: 
  Country: None (occurrence: None)
  Receive Date: 20040525
  Receipt Date: 20040510
  Transmission Date: 20050107
  Serious: Yes (Hospitalization)
  Sender: FDA-Public Use
  Company Number: 2004UW09865

PATIENT
  Age: 76 Year
  Sex: Female

DRUGS (1)
  1. CRESTOR [Suspect]
     Dosage: 10 MG PO
     Route: 048

REACTIONS (12)
  - ALANINE AMINOTRANSFERASE INCREASED [None]
  - ASPARTATE AMINOTRANSFERASE INCREASED [None]
  - ASTHENIA [None]
  - BLOOD CREATINE PHOSPHOKINASE INCREASED [None]
  - DIFFICULTY IN WALKING [None]
  - DRUG HYPERSENSITIVITY [None]
  - HEADACHE [None]
  - LIVER FUNCTION TEST ABNORMAL [None]
  - PAIN [None]
  - PYREXIA [None]
  - RASH [None]
  - TREMOR [None]
